FAERS Safety Report 8217345-X (Version None)
Quarter: 2012Q1

REPORT INFORMATION
  Report Type: 
  Country: None (occurrence: None)
  Receive Date: 20120319
  Receipt Date: 20120312
  Transmission Date: 20120608
  Serious: Yes (Other)
  Sender: FDA-Public Use
  Company Number: AT-PFIZER INC-2012064844

PATIENT
  Age: 40 Year
  Sex: Female

DRUGS (4)
  1. HALOPERIDOL [Suspect]
     Indication: PSYCHOTIC DISORDER
     Dosage: UNK
  2. OLANZAPINE [Concomitant]
     Indication: PSYCHOTIC DISORDER
     Dosage: UNK
  3. ARIPIPRAZOLE [Interacting]
     Indication: PSYCHOTIC DISORDER
     Dosage: UNK
  4. RISPERIDONE [Interacting]
     Indication: PSYCHOTIC DISORDER
     Dosage: UNK

REACTIONS (3)
  - PSYCHOTIC DISORDER [None]
  - GALACTORRHOEA [None]
  - DRUG INTERACTION [None]
